FAERS Safety Report 16824652 (Version 1)
Quarter: 2019Q3

REPORT INFORMATION
  Report Type: Spontaneous
  Country: HU (occurrence: HU)
  Receive Date: 20190918
  Receipt Date: 20190918
  Transmission Date: 20191005
  Serious: Yes (Death, Hospitalization, Other)
  Sender: FDA-Public Use
  Company Number: HU-009507513-1909HUN005655

PATIENT
  Age: 60 Year
  Sex: Male
  Weight: 100 kg

DRUGS (8)
  1. MONTELUKAST [Concomitant]
     Active Substance: MONTELUKAST SODIUM
     Dosage: 1 X 10MG
     Route: 048
  2. CLARINEX [Concomitant]
     Active Substance: DESLORATADINE
     Dosage: 1 X 5 MG
     Route: 048
  3. KEYTRUDA [Suspect]
     Active Substance: PEMBROLIZUMAB
     Indication: LUNG NEOPLASM MALIGNANT
     Dosage: 200 MILLIGRAM, EVERY THIRD WEEK
     Route: 042
     Dates: start: 20190201, end: 20190222
  4. SANVAL [Concomitant]
     Active Substance: ZOLPIDEM TARTRATE
     Dosage: 1 X 10MG
     Route: 048
  5. VENTOLIN [Concomitant]
     Active Substance: ALBUTEROL SULFATE
     Dosage: 100 MCG/DOSE, AS NEEDED
     Route: 055
  6. NEBIBETA [Concomitant]
     Active Substance: NEBIVOLOL HYDROCHLORIDE
     Dosage: 5 MILLIGRAM
     Route: 048
  7. FOSTER [Concomitant]
     Active Substance: BECLOMETHASONE\FORMOTEROL
     Dosage: 2 X 2 INHALATION
     Route: 055
  8. TANYDON HCT [Concomitant]
     Dosage: 80 MG/12. 5MG.
     Route: 048

REACTIONS (11)
  - Hydrothorax [Unknown]
  - Cough [Unknown]
  - Hepatitis [Unknown]
  - Sputum abnormal [Unknown]
  - Decreased appetite [Unknown]
  - Surgery [Recovered/Resolved]
  - Dyspnoea [Unknown]
  - Lung abscess [Unknown]
  - Pyrexia [Recovered/Resolved]
  - Death [Fatal]
  - Transfusion [Recovered/Resolved]

NARRATIVE: CASE EVENT DATE: 2019
